FAERS Safety Report 4907097-0 (Version None)
Quarter: 2006Q1

REPORT INFORMATION
  Report Type: 
  Country: None (occurrence: None)
  Receive Date: 20060206
  Receipt Date: 20060119
  Transmission Date: 20060701
  Serious: Yes (Death, Life-Threatening)
  Sender: FDA-Public Use
  Company Number: 2006009050

PATIENT
  Age: 71 Year
  Sex: Female

DRUGS (6)
  1. CELEBREX [Suspect]
     Indication: ILL-DEFINED DISORDER
     Dosage: 1 DOSE FORM (1 IN 1 D), ORAL
     Route: 048
  2. AMLODIPINE [Suspect]
     Indication: ILL-DEFINED DISORDER
     Dosage: 5 MG (5 MG, 1 IN 1 D), ORAL
     Route: 048
  3. ACETYLSALICYLATE LYSINE (ACETYLSALICYLATE LYSINE) [Suspect]
     Indication: ILL-DEFINED DISORDER
     Dosage: 75 MG (1 IN 1 D), ORAL
     Route: 048
  4. CANDESARTAN (CANDESARTAN) [Suspect]
     Indication: ILL-DEFINED DISORDER
     Dosage: 8 MG (1 IN 1 D), ORAL
     Route: 048
  5. CELIPROLOL HYDROCHLORIDE (CELIPROLOL HYDROCHLORIDE) [Suspect]
     Indication: ILL-DEFINED DISORDER
     Dosage: 200 MG (200 MG, 1 IN 1 D), ORAL
     Route: 048
  6. NITROGLYCERIN [Suspect]
     Indication: ILL-DEFINED DISORDER
     Dosage: 10 MG (10 MG, 1 IN 1 D), TRANSDERMAL
     Route: 062

REACTIONS (4)
  - CARDIAC ARREST [None]
  - ISCHAEMIC STROKE [None]
  - MENINGITIS [None]
  - RESPIRATORY ARREST [None]
